FAERS Safety Report 4734458-5 (Version None)
Quarter: 2005Q3

REPORT INFORMATION
  Report Type: 
  Country: None (occurrence: None)
  Receive Date: 20050729
  Receipt Date: 20050725
  Transmission Date: 20060218
  Serious: Yes (Hospitalization)
  Sender: FDA-Public Use
  Company Number: S05-USA-03464-01

PATIENT
  Age: 72 Year
  Sex: Female

DRUGS (1)
  1. TIAZAC [Suspect]
     Indication: HYPERTENSION
     Dates: start: 20030618

REACTIONS (3)
  - ASTHENIA [None]
  - HYPERSENSITIVITY [None]
  - STEVENS-JOHNSON SYNDROME [None]
